FAERS Safety Report 9450917 (Version 3)
Quarter: 2013Q3

REPORT INFORMATION
  Report Type: Spontaneous
  Country: FR (occurrence: None)
  Receive Date: 20130807
  Receipt Date: 20130927
  Transmission Date: 20140515
  Serious: Yes (Other)
  Sender: FDA-Public Use
  Company Number: FR-ZYDUS-001867

PATIENT
  Age: 57 Year
  Sex: Female

DRUGS (1)
  1. OMEPRAZOLE [Suspect]

REACTIONS (8)
  - Subacute cutaneous lupus erythematosus [None]
  - Lupus vasculitis [None]
  - Drug ineffective [None]
  - Pericarditis [None]
  - Lymphadenopathy [None]
  - Bicytopenia [None]
  - Evans syndrome [None]
  - Hypergammaglobulinaemia [None]
